FAERS Safety Report 11451134 (Version 1)
Quarter: 2015Q3

REPORT INFORMATION
  Report Type: Spontaneous
  Country: US (occurrence: US)
  Receive Date: 20150903
  Receipt Date: 20150903
  Transmission Date: 20151125
  Serious: Yes (Other)
  Sender: FDA-Public Use
  Company Number: US-ROCHE-801062

PATIENT
  Sex: Male

DRUGS (3)
  1. PEGASYS [Suspect]
     Active Substance: PEGINTERFERON ALFA-2A
     Indication: CHRONIC HEPATITIS C
     Dosage: FORM: INJECTIONS
     Route: 065
  2. VALIUM [Concomitant]
     Active Substance: DIAZEPAM
  3. RIBAVIRIN. [Suspect]
     Active Substance: RIBAVIRIN
     Indication: CHRONIC HEPATITIS C
     Route: 065

REACTIONS (12)
  - Suicidal ideation [Unknown]
  - Depression [Unknown]
  - Fear [Unknown]
  - Injection site inflammation [Unknown]
  - Irritability [Unknown]
  - Nausea [Unknown]
  - Vomiting [Unknown]
  - Blood glucose abnormal [Unknown]
  - Bone pain [Unknown]
  - Diarrhoea [Unknown]
  - Hypersomnia [Unknown]
  - Injection site reaction [Unknown]
